FAERS Safety Report 11026150 (Version 1)
Quarter: 2015Q2

REPORT INFORMATION
  Report Type: Spontaneous
  Country: PT (occurrence: PT)
  Receive Date: 20150414
  Receipt Date: 20150414
  Transmission Date: 20150821
  Serious: Yes (Other)
  Sender: FDA-Public Use
  Company Number: PT-ACTAVIS-2015-07542

PATIENT
  Age: 52 Year
  Sex: Female

DRUGS (4)
  1. DOCETAXEL ACTAVIS [Suspect]
     Active Substance: DOCETAXEL
     Indication: BREAST CANCER
     Dosage: 100 MG/M2, 1/ THREE WEEKS
     Route: 042
     Dates: start: 20150220, end: 20150220
  2. DEXAMETASONA                       /00016001/ [Concomitant]
     Indication: ALLERGY PROPHYLAXIS
     Dosage: 20 MG, DAILY
     Route: 042
  3. ONDANSETROM                        /00955301/ [Concomitant]
     Indication: ALLERGY PROPHYLAXIS
     Dosage: 8 MG, DAILY
     Route: 042
  4. HERCEPTIN [Concomitant]
     Active Substance: TRASTUZUMAB
     Indication: BREAST CANCER
     Dosage: UNK. ROCHE REGISTRATION, LTD.
     Route: 042
     Dates: start: 20150220, end: 20150220

REACTIONS (2)
  - Injection site discolouration [Not Recovered/Not Resolved]
  - Skin lesion [Not Recovered/Not Resolved]

NARRATIVE: CASE EVENT DATE: 20150220
